FAERS Safety Report 19963629 (Version 1)
Quarter: 2021Q4

REPORT INFORMATION
  Report Type: Spontaneous
  Country: US (occurrence: US)
  Receive Date: 20211015
  Receipt Date: 20211015
  Transmission Date: 20220303
  Serious: Yes (Hospitalization)
  Sender: FDA-Public Use
  Company Number: None

PATIENT
  Age: 25 Year
  Sex: Female
  Weight: 34.07 kg

DRUGS (1)
  1. REGEN-COV [Suspect]
     Active Substance: CASIRIVIMAB\IMDEVIMAB
     Indication: SARS-CoV-2 test positive
     Route: 041
     Dates: start: 20211008, end: 20211008

REACTIONS (4)
  - Cough [None]
  - Discomfort [None]
  - COVID-19 pneumonia [None]
  - Exposure during pregnancy [None]

NARRATIVE: CASE EVENT DATE: 20211008
